FAERS Safety Report 23923878 (Version 1)
Quarter: 2024Q2

REPORT INFORMATION
  Report Type: Spontaneous
  Country: US (occurrence: US)
  Receive Date: 20240531
  Receipt Date: 20240531
  Transmission Date: 20240716
  Serious: Yes (Life-Threatening, Hospitalization, Disabling, Other)
  Sender: FDA-Public Use
  Company Number: US-BoehringerIngelheim-2024-BI-031034

PATIENT
  Sex: Male

DRUGS (1)
  1. JARDIANCE [Suspect]
     Active Substance: EMPAGLIFLOZIN
     Indication: Product used for unknown indication

REACTIONS (4)
  - Fournier^s gangrene [Recovered/Resolved with Sequelae]
  - Renal failure [Unknown]
  - Gait inability [Not Recovered/Not Resolved]
  - Impaired healing [Not Recovered/Not Resolved]
